FAERS Safety Report 9539664 (Version 1)
Quarter: 2013Q3

REPORT INFORMATION
  Report Type: Spontaneous
  Country: US (occurrence: US)
  Receive Date: 20130920
  Receipt Date: 20130920
  Transmission Date: 20140515
  Serious: No
  Sender: FDA-Public Use
  Company Number: US-009507513-1309USA004904

PATIENT
  Age: 26 Year
  Sex: Female
  Weight: 102.4 kg

DRUGS (2)
  1. NUVARING [Suspect]
     Indication: CONTRACEPTION
     Dosage: ONE RING/ 3 WEEKS, 0.120 MG/0.015 MG PER 24 HOURS VAGINAL DELIVERY SYSTEM
     Route: 067
     Dates: start: 2011
  2. ALEVE [Concomitant]

REACTIONS (1)
  - Unintended pregnancy [Unknown]
